FAERS Safety Report 6025159-4 (Version None)
Quarter: 2008Q4

REPORT INFORMATION
  Report Type: 
  Country: None (occurrence: None)
  Receive Date: 20081231
  Receipt Date: 20081219
  Transmission Date: 20090506
  Serious: Yes (Other)
  Sender: FDA-Public Use
  Company Number: GB-PFIZER INC-2008157273

PATIENT

DRUGS (2)
  1. SULFASALAZINE [Suspect]
     Indication: COLITIS ULCERATIVE
     Dosage: UNK
     Dates: start: 19680422
  2. SULFASALAZINE [Suspect]
     Dosage: UNK

REACTIONS (14)
  - AGITATION [None]
  - CONFUSIONAL STATE [None]
  - COUGH [None]
  - DYSGEUSIA [None]
  - HALLUCINATION [None]
  - HEADACHE [None]
  - JAUNDICE [None]
  - LIVER FUNCTION TEST ABNORMAL [None]
  - NEUROTOXICITY [None]
  - PYREXIA [None]
  - RASH [None]
  - RETCHING [None]
  - VOMITING [None]
  - WHITE BLOOD CELL COUNT INCREASED [None]
